FAERS Safety Report 8942481 (Version 1)
Quarter: 2012Q4

REPORT INFORMATION
  Report Type: 
  Country: DE (occurrence: DE)
  Receive Date: 20121204
  Receipt Date: 20121204
  Transmission Date: 20130627
  Serious: Yes (Other)
  Sender: FDA-Public Use
  Company Number: PHHY2012DE109202

PATIENT
  Age: 61 Year
  Sex: Male
  Weight: 85 kg

DRUGS (2)
  1. PROVAS [Suspect]
     Indication: HYPERTENSION
     Dosage: 160 mg, 0.5 DF twice daily
     Route: 048
     Dates: start: 2009
  2. ATACAND [Suspect]
     Dosage: 16 mg, 2 DF eevryday
     Route: 048

REACTIONS (5)
  - Arthritis [Recovering/Resolving]
  - Myositis [Recovering/Resolving]
  - Tendonitis [Recovering/Resolving]
  - Tendon rupture [Recovering/Resolving]
  - Wrong technique in drug usage process [Unknown]
